FAERS Safety Report 19373027 (Version 1)
Quarter: 2021Q2

REPORT INFORMATION
  Report Type: Spontaneous
  Country: KR (occurrence: KR)
  Receive Date: 20210604
  Receipt Date: 20210604
  Transmission Date: 20210717
  Serious: Yes (Death, Life-Threatening, Hospitalization, Other)
  Sender: FDA-Public Use
  Company Number: KR-STRIDES ARCOLAB LIMITED-2021SP006049

PATIENT
  Age: 52 Year
  Sex: Female

DRUGS (5)
  1. AZATHIOPRINE. [Suspect]
     Active Substance: AZATHIOPRINE
     Indication: AUTOIMMUNE HEPATITIS
     Dosage: 50 MILLIGRAM/KILOGRAM, 6 DAYS
     Route: 065
  2. PREDNISOLONE. [Suspect]
     Active Substance: PREDNISOLONE
     Dosage: 5 MILLIGRAM 6 DAYS
     Route: 065
  3. URSODEOXYCHOLIC [Suspect]
     Active Substance: URSODIOL
     Indication: AUTOIMMUNE HEPATITIS
     Dosage: 15 MILLIGRAM/KILOGRAM
     Route: 065
  4. PREDNISOLONE. [Suspect]
     Active Substance: PREDNISOLONE
     Indication: AUTOIMMUNE HEPATITIS
     Dosage: 40 MILLIGRAM, 24 HOUR FOR 2 WEEKS
     Route: 065
  5. PREDNISOLONE. [Suspect]
     Active Substance: PREDNISOLONE
     Dosage: 10 MILLIGRAM 1 WEEK
     Route: 065

REACTIONS (8)
  - Necrotising gastritis [Fatal]
  - Cardiac arrest [Fatal]
  - Off label use [Unknown]
  - Pulseless electrical activity [Fatal]
  - Septic shock [Fatal]
  - Stress cardiomyopathy [Fatal]
  - Leukopenia [Fatal]
  - Systemic infection [Fatal]
